FAERS Safety Report 16673343 (Version 2)
Quarter: 2019Q3

REPORT INFORMATION
  Report Type: Spontaneous
  Country: US (occurrence: US)
  Receive Date: 20190806
  Receipt Date: 20190823
  Transmission Date: 20191004
  Serious: No
  Sender: FDA-Public Use
  Company Number: US-PFIZER INC-2019336037

PATIENT
  Age: 67 Year
  Sex: Male
  Weight: 86.17 kg

DRUGS (7)
  1. LYRICA [Concomitant]
     Active Substance: PREGABALIN
     Indication: PAIN
     Dosage: 25 MG, 3X/DAY
     Dates: start: 2013
  2. DILANTIN [Suspect]
     Active Substance: PHENYTOIN
     Indication: EPILEPSY
     Dosage: 200 MG, AT NIGHT
  3. DILANTIN [Suspect]
     Active Substance: PHENYTOIN
     Dosage: 300 MG, DAILY (AS DIRECTED, 1 CAP AT AM 2 CAPS AT PM)
     Route: 048
  4. DILANTIN [Suspect]
     Active Substance: PHENYTOIN
     Dosage: 400 MG, DAILY
     Route: 048
     Dates: start: 2012, end: 2019
  5. DILANTIN [Suspect]
     Active Substance: PHENYTOIN
     Dosage: 300 MG, (TAKE 1 CAPSULE BY MOUTH EVERY MORNING AND 2 CAPSULES EVERY MORNING, 10 REFILL)
  6. PREDNISONE. [Concomitant]
     Active Substance: PREDNISONE
     Indication: SYSTEMIC LUPUS ERYTHEMATOSUS
     Dosage: 6 MG, UNK
     Dates: start: 2013
  7. IVIGLOB EX [Concomitant]
     Active Substance: HUMAN IMMUNOGLOBULIN G
     Indication: CHRONIC INFLAMMATORY DEMYELINATING POLYRADICULONEUROPATHY
     Dosage: UNK UNK, MONTHLY
     Dates: start: 2014

REACTIONS (2)
  - Bone disorder [Unknown]
  - Osteopenia [Not Recovered/Not Resolved]
